FAERS Safety Report 4991674-5 (Version None)
Quarter: 2006Q2

REPORT INFORMATION
  Report Type: 
  Country: None (occurrence: None)
  Receive Date: 20060504
  Receipt Date: 20050926
  Transmission Date: 20061013
  Serious: Yes (Hospitalization)
  Sender: FDA-Public Use
  Company Number: PHHO2005FR15050

PATIENT
  Age: 25 Year
  Sex: Female

DRUGS (8)
  1. CYCLOSPORINE [Suspect]
     Indication: RENAL TRANSPLANT
     Dosage: 450 MG, BID
     Route: 048
     Dates: start: 20050615
  2. MYCOPHENOLATE MOFETIL [Suspect]
     Indication: RENAL TRANSPLANT
     Dosage: 500 MG, BID
     Route: 048
     Dates: start: 20050614
  3. MYCOPHENOLATE MOFETIL [Suspect]
     Dosage: 500 MG, BID
     Route: 048
  4. ZENAPAX [Suspect]
     Indication: RENAL TRANSPLANT
     Dosage: 106 MG, ONCE/SINGLE
     Route: 042
     Dates: start: 20050615, end: 20050615
  5. ZENAPAX [Suspect]
     Dosage: 53 MG, ONCE/SINGLE
     Route: 042
     Dates: start: 20050630, end: 20050630
  6. SOLUPRED [Suspect]
     Indication: RENAL TRANSPLANT
     Dosage: 10 MG, QD
     Route: 048
     Dates: start: 20050614
  7. RAPAMUNE [Suspect]
     Indication: RENAL TRANSPLANT
     Dosage: 6 MG, QD
     Route: 048
     Dates: start: 20050906, end: 20051211
  8. MOPRAL [Concomitant]
     Dates: start: 20050614

REACTIONS (5)
  - ABDOMINAL PAIN [None]
  - CYTOMEGALOVIRUS INFECTION [None]
  - DIARRHOEA [None]
  - FEBRILE NEUTROPENIA [None]
  - PYREXIA [None]
